FAERS Safety Report 8343737-4 (Version None)
Quarter: 2012Q1

REPORT INFORMATION
  Report Type: 
  Country: None (occurrence: None)
  Receive Date: 20120330
  Receipt Date: 20110401
  Transmission Date: 20120608
  Serious: Yes (Other)
  Sender: FDA-Public Use
  Company Number: PHHY2011US28027

PATIENT
  Age: 83 Year
  Sex: Female

DRUGS (6)
  1. EXELON [Suspect]
     Dosage: 4.6 MG, ONE PATCH DAILY, TRANSDERMAL
     Route: 062
  2. SYNTHROID [Concomitant]
  3. OMEPRAZOLE [Concomitant]
  4. ATENOLOL [Concomitant]
  5. MULTIVITAMINS (ASCORBIC ACID, ERGOCALCIFEROL, FOLIC ACID, NICOTINAMIDE [Concomitant]
  6. ASPIRIN [Concomitant]

REACTIONS (2)
  - FEELING DRUNK [None]
  - FALL [None]
